FAERS Safety Report 6461752-2 (Version None)
Quarter: 2009Q4

REPORT INFORMATION
  Report Type: 
  Country: None (occurrence: None)
  Receive Date: 20091130
  Receipt Date: 20091117
  Transmission Date: 20100525
  Serious: Yes (Other)
  Sender: FDA-Public Use
  Company Number: PHEH2009US16188

PATIENT
  Sex: Female

DRUGS (7)
  1. DIOVAN [Interacting]
     Indication: HYPERTENSION
     Dosage: 80 MG, QD
     Route: 048
     Dates: start: 20080101
  2. REVATIO [Interacting]
     Indication: PULMONARY HYPERTENSION
     Dosage: 20 MG, BID
     Route: 048
     Dates: start: 20091001
  3. REVATIO [Interacting]
     Dosage: 20 MG, TID
  4. REVATIO [Interacting]
     Dosage: 20 MG, BID
  5. VERAPAMIL [Interacting]
     Indication: HYPERTENSION
     Dosage: 120 MG, QD
     Route: 048
  6. MEDROL [Suspect]
     Indication: GOUT
     Dosage: 4 MG, BID
     Route: 048
     Dates: start: 20080101
  7. LASIX [Interacting]
     Indication: HYPERTENSION
     Dosage: 20 MG, ONCE A DAY SOMETIME TWICE DAY PRN
     Route: 048
     Dates: start: 20080101

REACTIONS (7)
  - BLOOD URIC ACID INCREASED [None]
  - DIARRHOEA [None]
  - DRUG INTERACTION [None]
  - GOUT [None]
  - PALPITATIONS [None]
  - PULMONARY HYPERTENSION [None]
  - RHINORRHOEA [None]
